FAERS Safety Report 12518409 (Version 3)
Quarter: 2016Q4

REPORT INFORMATION
  Report Type: Spontaneous
  Country: FR (occurrence: FR)
  Receive Date: 20160630
  Receipt Date: 20161003
  Transmission Date: 20170207
  Serious: Yes (Hospitalization, Other)
  Sender: FDA-Public Use
  Company Number: FR-AMGEN-FRASP2016081868

PATIENT
  Age: 71 Year
  Sex: Female

DRUGS (7)
  1. ENBREL [Suspect]
     Active Substance: ETANERCEPT
     Indication: RHEUMATOID ARTHRITIS
     Dosage: 50 MG, WEEKLY
     Route: 065
     Dates: start: 20160415, end: 20160513
  2. LAMICTAL [Concomitant]
     Active Substance: LAMOTRIGINE
     Dosage: 100 MG, UNK
  3. CORTANCYL [Concomitant]
     Active Substance: PREDNISONE
     Dosage: 5 MG, UNK
  4. ZOPICLONE [Concomitant]
     Active Substance: ZOPICLONE
     Dosage: UNK
  5. CALCIPRAT [Concomitant]
     Dosage: 1000 MG, UNK TABLET TO SUCK
  6. ENBREL [Suspect]
     Active Substance: ETANERCEPT
     Dosage: UNK
     Route: 065
  7. LANSOYL [Concomitant]
     Active Substance: MINERAL OIL
     Dosage: UNK

REACTIONS (8)
  - Asthenia [Unknown]
  - Dementia Alzheimer^s type [Unknown]
  - Disturbance in attention [Unknown]
  - Rash papular [Unknown]
  - Gait disturbance [Unknown]
  - Cognitive disorder [Unknown]
  - Mania [Recovered/Resolved]
  - Memory impairment [Unknown]

NARRATIVE: CASE EVENT DATE: 20160515
